FAERS Safety Report 9989619 (Version 1)
Quarter: 2014Q1

REPORT INFORMATION
  Report Type: Report from Study
  Country: US (occurrence: US)
  Receive Date: 20140310
  Receipt Date: 20140310
  Transmission Date: 20141002
  Serious: No
  Sender: FDA-Public Use
  Company Number: US-ABBVIE-13P-163-1129845-00

PATIENT
  Age: 56 Year
  Sex: Male
  Weight: 92.62 kg

DRUGS (7)
  1. HUMIRA [Suspect]
     Indication: CROHN^S DISEASE
     Dates: start: 201207, end: 201207
  2. HUMIRA [Suspect]
     Dates: start: 201207, end: 201207
  3. HUMIRA [Suspect]
     Dates: start: 201208
  4. METFORMIN [Suspect]
     Indication: GLYCOSYLATED HAEMOGLOBIN INCREASED
     Dates: start: 201306
  5. LISINOPRIL [Concomitant]
     Indication: PRODUCT USED FOR UNKNOWN INDICATION
  6. ASPIRIN [Concomitant]
     Indication: PRODUCT USED FOR UNKNOWN INDICATION
  7. PREVACID [Concomitant]
     Indication: PRODUCT USED FOR UNKNOWN INDICATION

REACTIONS (6)
  - Fluid retention [Not Recovered/Not Resolved]
  - Myalgia [Not Recovered/Not Resolved]
  - Glycosylated haemoglobin increased [Unknown]
  - Muscle spasms [Not Recovered/Not Resolved]
  - Headache [Not Recovered/Not Resolved]
  - Tinnitus [Not Recovered/Not Resolved]
